FAERS Safety Report 5684416-1 (Version None)
Quarter: 2008Q1

REPORT INFORMATION
  Report Type: 
  Country: None (occurrence: None)
  Receive Date: 20080328
  Receipt Date: 20080319
  Transmission Date: 20080703
  Serious: Yes (Other)
  Sender: FDA-Public Use
  Company Number: US-JNJFOC-20080305471

PATIENT
  Sex: Female
  Weight: 59.88 kg

DRUGS (5)
  1. FENTANYL TRANSDERMAL SYSTEM [Suspect]
     Indication: ARTHRALGIA
     Route: 062
  2. FLUOXETINE [Concomitant]
     Route: 048
  3. HALOPERIDOL [Concomitant]
     Indication: DEPRESSION
     Route: 048
  4. LOMOTIL [Concomitant]
     Indication: DIARRHOEA
     Route: 048
  5. SINEMET [Concomitant]
     Indication: TREMOR
     Route: 048

REACTIONS (11)
  - APPLICATION SITE ERYTHEMA [None]
  - APPLICATION SITE IRRITATION [None]
  - APPLICATION SITE RASH [None]
  - ASPIRATION [None]
  - COUGH [None]
  - HAEMATEMESIS [None]
  - HYPERHIDROSIS [None]
  - MALAISE [None]
  - NASOPHARYNGITIS [None]
  - NAUSEA [None]
  - VOMITING [None]
